FAERS Safety Report 14877408 (Version 3)
Quarter: 2018Q2

REPORT INFORMATION
  Report Type: Spontaneous
  Country: BR (occurrence: BR)
  Receive Date: 20180510
  Receipt Date: 20180603
  Transmission Date: 20180711
  Serious: Yes (Hospitalization)
  Sender: FDA-Public Use
  Company Number: BR-ALEXION-A201805569

PATIENT
  Age: 22 Year
  Sex: Male

DRUGS (2)
  1. SOLIRIS [Suspect]
     Active Substance: ECULIZUMAB
     Dosage: 900 MG, EVERY 14 DAYS
     Route: 042
     Dates: start: 20140213
  2. SOLIRIS [Suspect]
     Active Substance: ECULIZUMAB
     Indication: PAROXYSMAL NOCTURNAL HAEMOGLOBINURIA
     Dosage: 600 MG, EVERY 7 DAYS
     Route: 042
     Dates: start: 20140115, end: 20140205

REACTIONS (12)
  - Asthenia [Not Recovered/Not Resolved]
  - Musculoskeletal stiffness [Unknown]
  - Pyrexia [Unknown]
  - Pharyngitis [Unknown]
  - Malaise [Unknown]
  - Chills [Unknown]
  - Haemoglobin decreased [Unknown]
  - Vomiting [Not Recovered/Not Resolved]
  - Abdominal pain [Not Recovered/Not Resolved]
  - Tonsillitis [Unknown]
  - Platelet count decreased [Unknown]
  - Flank pain [Unknown]

NARRATIVE: CASE EVENT DATE: 20180429
